FAERS Safety Report 25529382 (Version 2)
Quarter: 2025Q3

REPORT INFORMATION
  Report Type: Spontaneous
  Country: JP (occurrence: JP)
  Receive Date: 20250708
  Receipt Date: 20250717
  Transmission Date: 20251020
  Serious: Yes (Life-Threatening, Other)
  Sender: PFIZER
  Company Number: JP-PFIZER INC-PV202400134173

PATIENT
  Age: 72 Year
  Sex: Male

DRUGS (3)
  1. FOSFLUCONAZOLE [Suspect]
     Active Substance: FOSFLUCONAZOLE
     Indication: Osteomyelitis
  2. MEROPENEM [Suspect]
     Active Substance: MEROPENEM
     Indication: Osteomyelitis
  3. CEFEPIME [Suspect]
     Active Substance: CEFEPIME HYDROCHLORIDE
     Indication: Osteomyelitis

REACTIONS (1)
  - Toxic encephalopathy [Unknown]
